FAERS Safety Report 7093655-7 (Version None)
Quarter: 2010Q4

REPORT INFORMATION
  Report Type: 
  Country: None (occurrence: None)
  Receive Date: 20101110
  Receipt Date: 20101028
  Transmission Date: 20110411
  Serious: Yes (Death)
  Sender: FDA-Public Use
  Company Number: BE-ROCHE-737830

PATIENT
  Sex: Female

DRUGS (3)
  1. BEVACIZUMAB [Suspect]
     Route: 065
  2. GDC-0941 [Suspect]
     Route: 065
  3. PACLITAXEL [Suspect]
     Route: 065

REACTIONS (1)
  - CARDIAC FAILURE [None]
